FAERS Safety Report 16119214 (Version 1)
Quarter: 2019Q1

REPORT INFORMATION
  Report Type: Spontaneous
  Country: US (occurrence: US)
  Receive Date: 20190326
  Receipt Date: 20190326
  Transmission Date: 20190418
  Serious: No
  Sender: FDA-Public Use
  Company Number: US-VISTAPHARM, INC.-VER201812-001010

PATIENT
  Sex: Male

DRUGS (3)
  1. PHENYTOIN. [Suspect]
     Active Substance: PHENYTOIN
     Indication: SEIZURE
     Dosage: 100 MG/4ML
  2. PHENYTOIN. [Suspect]
     Active Substance: PHENYTOIN
     Dosage: 125 MG/5 ML
  3. VALPROIC ACID. [Suspect]
     Active Substance: VALPROIC ACID
     Indication: SEIZURE
     Dosage: UNKNOWN

REACTIONS (3)
  - Gingival swelling [Unknown]
  - Hypersensitivity [Unknown]
  - Gait inability [Unknown]
